FAERS Safety Report 5060757-6 (Version None)
Quarter: 2006Q3

REPORT INFORMATION
  Report Type: 
  Country: None (occurrence: None)
  Receive Date: 20060719
  Receipt Date: 20060719
  Transmission Date: 20061208
  Serious: Yes (Hospitalization, Other)
  Sender: FDA-Public Use
  Company Number: None

PATIENT
  Age: 44 Year
  Sex: Female
  Weight: 72.5755 kg

DRUGS (5)
  1. VIOXX [Suspect]
     Indication: ARTHROPATHY
     Dosage: ONE TABLET  DAILY  PO
     Route: 048
     Dates: start: 20020601, end: 20040901
  2. VIOXX [Suspect]
     Indication: FLUID RETENTION
     Dosage: ONE TABLET  DAILY  PO
     Route: 048
     Dates: start: 20020601, end: 20040901
  3. VIOXX [Suspect]
     Indication: NERVOUS SYSTEM DISORDER
     Dosage: ONE TABLET  DAILY  PO
     Route: 048
     Dates: start: 20020601, end: 20040901
  4. BEXTRA [Suspect]
     Indication: FLUID RETENTION
     Dosage: ONE TABLET   DAILY   PO  (THERAPY DATES: 09/02/2004 UNTIL TAKEN OFF OF MARKET)
     Route: 048
     Dates: start: 20040901
  5. BEXTRA [Suspect]
     Indication: NERVE INJURY
     Dosage: ONE TABLET   DAILY   PO  (THERAPY DATES: 09/02/2004 UNTIL TAKEN OFF OF MARKET)
     Route: 048
     Dates: start: 20040901

REACTIONS (5)
  - FUNGAL INFECTION [None]
  - PAIN OF SKIN [None]
  - RASH PRURITIC [None]
  - RASH PUSTULAR [None]
  - SCAR [None]
